FAERS Safety Report 9472122 (Version 1)
Quarter: 2013Q3

REPORT INFORMATION
  Report Type: Spontaneous
  Country: US (occurrence: US)
  Receive Date: 20130823
  Receipt Date: 20130823
  Transmission Date: 20140515
  Serious: No
  Sender: FDA-Public Use
  Company Number: US-B.I. PHARMACEUTICALS,INC./RIDGEFIELD-2013-BI-24857BP

PATIENT
  Age: 81 Year
  Sex: Male
  Weight: 87 kg

DRUGS (5)
  1. PRADAXA [Suspect]
     Indication: ATRIAL FIBRILLATION
     Dosage: 300 MG
     Route: 048
     Dates: start: 201109
  2. BETAXOLOL HYDROCHLORIDE OPHTHALMIC SOLUTION [Concomitant]
     Indication: GLAUCOMA
     Dosage: STRENGTH: 1 DROP / EYE; DAILY DOSE: 2 DROPS / EYE
  3. LATANOPROST EYE DROPS [Concomitant]
     Indication: GLAUCOMA
     Dosage: STRENGTH: 1 DROP / EYE; DAILY DOSE: 1 DROP / EYE
  4. AMITRIPTYLINE [Concomitant]
     Indication: SLEEP DISORDER
     Route: 048
  5. TEKAMLO [Concomitant]
     Indication: HYPERTENSION
     Dosage: STRENGTH: 300 MG / 10 MG; DAILY DOSE: 300 MG / 10 MG
     Route: 048

REACTIONS (2)
  - Contusion [Not Recovered/Not Resolved]
  - Laceration [Recovered/Resolved]
